FAERS Safety Report 9348243 (Version 1)
Quarter: 2013Q2

REPORT INFORMATION
  Report Type: Spontaneous
  Country: US (occurrence: None)
  Receive Date: 20130612
  Receipt Date: 20130612
  Transmission Date: 20140414
  Serious: Yes (Other)
  Sender: FDA-Public Use
  Company Number: None

PATIENT
  Age: 59 Year
  Sex: Female
  Weight: 48.08 kg

DRUGS (2)
  1. LEVOTHYROXINE [Suspect]
     Route: 048
     Dates: start: 20120822
  2. LEVOXYL [Suspect]

REACTIONS (4)
  - Anxiety [None]
  - Abdominal pain [None]
  - Nausea [None]
  - Drug intolerance [None]
